FAERS Safety Report 14953650 (Version 1)
Quarter: 2018Q2

REPORT INFORMATION
  Report Type: Spontaneous
  Country: FR (occurrence: FR)
  Receive Date: 20180530
  Receipt Date: 20180530
  Transmission Date: 20180711
  Serious: Yes (Other)
  Sender: FDA-Public Use
  Company Number: FR-MERCK KGAA-2048697

PATIENT
  Age: 73 Year
  Sex: Female

DRUGS (1)
  1. NOVOTHYROX [Suspect]
     Active Substance: LEVOTHYROXINE SODIUM
     Indication: PRODUCT USED FOR UNKNOWN INDICATION

REACTIONS (24)
  - Arrhythmia [None]
  - Arthralgia [None]
  - Mood swings [None]
  - Migraine [None]
  - Aggression [None]
  - Decreased appetite [None]
  - Headache [None]
  - Vertigo [None]
  - Affective disorder [None]
  - Anger [None]
  - Fatigue [None]
  - Somnolence [None]
  - Hypoaesthesia [None]
  - Decreased activity [None]
  - Alopecia [None]
  - Muscle spasms [None]
  - Insomnia [None]
  - Nervousness [None]
  - Dizziness [None]
  - Joint swelling [None]
  - Decreased interest [None]
  - Depression [None]
  - Stress [None]
  - Nausea [None]

NARRATIVE: CASE EVENT DATE: 2017
